FAERS Safety Report 5930056-6 (Version None)
Quarter: 2008Q4

REPORT INFORMATION
  Report Type: 
  Country: None (occurrence: None)
  Receive Date: 20081024
  Receipt Date: 20081017
  Transmission Date: 20090506
  Serious: Yes (Life-Threatening)
  Sender: FDA-Public Use
  Company Number: DE-B.I. PHARMACEUTICALS,INC./RIDGEFIELD-2008-DE-06151DE

PATIENT
  Sex: Female
  Weight: 68 kg

DRUGS (4)
  1. VIRAMUNE [Suspect]
     Indication: HIV INFECTION
     Dosage: 1ANZ
     Route: 048
     Dates: start: 20080625
  2. VIRAMUNE [Suspect]
     Dosage: 2ANZ
     Route: 048
     Dates: end: 20080719
  3. COMBIVIR [Suspect]
     Indication: HIV INFECTION
     Dosage: 2ANZ
     Dates: start: 20000101
  4. VIRACEPT [Concomitant]
     Indication: HIV INFECTION

REACTIONS (7)
  - CIRCULATORY COLLAPSE [None]
  - CONFUSIONAL STATE [None]
  - DRUG HYPERSENSITIVITY [None]
  - HEPATITIS [None]
  - JAUNDICE [None]
  - PNEUMONIA [None]
  - PYREXIA [None]
